FAERS Safety Report 6751544-9 (Version None)
Quarter: 2010Q2

REPORT INFORMATION
  Report Type: 
  Country: None (occurrence: None)
  Receive Date: 20100528
  Receipt Date: 20100514
  Transmission Date: 20101027
  Serious: No
  Sender: FDA-Public Use
  Company Number: 001699

PATIENT
  Sex: Male

DRUGS (3)
  1. LACOSAMIDE [Suspect]
     Indication: EPILEPSY
     Dosage: (250 MG BID), (150 MG BID ORAL)
     Route: 048
     Dates: start: 20090301, end: 20090710
  2. LAMICTAL [Concomitant]
  3. CLONAZEPAM [Concomitant]

REACTIONS (2)
  - DRUG RESISTANCE [None]
  - EPILEPSY [None]
